FAERS Safety Report 15691141 (Version 1)
Quarter: 2018Q4

REPORT INFORMATION
  Report Type: Report from Study
  Country: CA (occurrence: CA)
  Receive Date: 20181205
  Receipt Date: 20181205
  Transmission Date: 20190205
  Serious: Yes (Disabling)
  Sender: FDA-Public Use
  Company Number: CA-ACTELION-A-NJ2018-182696

PATIENT
  Age: 79 Year
  Sex: Male

DRUGS (12)
  1. ADCIRCA [Concomitant]
     Active Substance: TADALAFIL
  2. PANTOLOC [Concomitant]
     Active Substance: PANTOPRAZOLE SODIUM
  3. PLAVIX [Concomitant]
     Active Substance: CLOPIDOGREL BISULFATE
  4. LANTUS [Concomitant]
     Active Substance: INSULIN GLARGINE
  5. LASIX [Concomitant]
     Active Substance: FUROSEMIDE
  6. BISOPROLOL [Concomitant]
     Active Substance: BISOPROLOL
  7. OPSUMIT [Suspect]
     Active Substance: MACITENTAN
     Indication: PULMONARY ARTERIAL HYPERTENSION
     Dosage: 10 MG, UNK
     Route: 048
     Dates: start: 20141211
  8. METFORMIN [Concomitant]
     Active Substance: METFORMIN HYDROCHLORIDE
  9. UPTRAVI [Suspect]
     Active Substance: SELEXIPAG
     Indication: PULMONARY ARTERIAL HYPERTENSION
     Dosage: 400 MCG, UNK
     Route: 048
     Dates: start: 20181105, end: 20181123
  10. UPTRAVI [Suspect]
     Active Substance: SELEXIPAG
     Dosage: 400MCG AM, 200MCG PM
     Route: 048
     Dates: start: 20181125
  11. ALDACTONE [Concomitant]
     Active Substance: SPIRONOLACTONE
  12. SALBUTAMOL [Concomitant]
     Active Substance: ALBUTEROL

REACTIONS (2)
  - Feeling abnormal [Recovering/Resolving]
  - Headache [Recovering/Resolving]

NARRATIVE: CASE EVENT DATE: 20181123
